FAERS Safety Report 4743038-7 (Version None)
Quarter: 2005Q3

REPORT INFORMATION
  Report Type: 
  Country: None (occurrence: None)
  Receive Date: 20050809
  Receipt Date: 20050801
  Transmission Date: 20060218
  Serious: Yes (Hospitalization, Other)
  Sender: FDA-Public Use
  Company Number: 2005109286

PATIENT
  Age: 84 Year
  Sex: Male
  Weight: 65.7716 kg

DRUGS (8)
  1. LIPITOR [Suspect]
     Indication: BLOOD CHOLESTEROL INCREASED
     Dosage: 10 MG (10 MG, 1 IN 1 D)
     Dates: end: 20040101
  2. CRESTOR [Suspect]
     Indication: ILL-DEFINED DISORDER
  3. LORAZEPAM [Suspect]
     Indication: ANXIETY
  4. ALTACE [Concomitant]
  5. NEXIUM [Concomitant]
  6. PRILOSEC [Concomitant]
  7. VITAMIN B12 [Concomitant]
  8. VITAMINS (VITAMINS) [Concomitant]

REACTIONS (4)
  - ARTERIAL OCCLUSIVE DISEASE [None]
  - ASTHENIA [None]
  - HYPOTONIA [None]
  - STENT PLACEMENT [None]
